FAERS Safety Report 10932085 (Version 1)
Quarter: 2015Q1

REPORT INFORMATION
  Report Type: Spontaneous
  Country: US (occurrence: None)
  Receive Date: 20150128
  Receipt Date: 20150128
  Transmission Date: 20150721
  Serious: Yes (Hospitalization)
  Sender: FDA-Public Use
  Company Number: 2014TUS010863

PATIENT
  Age: 23 Year
  Sex: Female
  Weight: 100.2 kg

DRUGS (2)
  1. OXYBUTYNIN (OXYBUTYNIN) [Concomitant]
     Active Substance: OXYBUTYNIN
  2. BRINTELLIX [Suspect]
     Active Substance: VORTIOXETINE HYDROBROMIDE
     Indication: DEPRESSION
     Dosage: 10 MG SAMPLES
     Route: 048
     Dates: start: 20141023, end: 20141026

REACTIONS (1)
  - Throat tightness [None]
